FAERS Safety Report 7962554-8 (Version None)
Quarter: 2011Q4

REPORT INFORMATION
  Report Type: 
  Country: None (occurrence: None)
  Receive Date: 20111207
  Receipt Date: 20111130
  Transmission Date: 20120403
  Serious: Yes (Other)
  Sender: FDA-Public Use
  Company Number: ES-GLAXOSMITHKLINE-B0767548A

PATIENT
  Age: 54 Year
  Sex: Male

DRUGS (3)
  1. COLESTID [Suspect]
     Indication: BLOOD TRIGLYCERIDES INCREASED
     Dosage: 5G PER DAY
     Route: 048
     Dates: start: 20111024
  2. LAMICTAL [Suspect]
     Indication: EPILEPSY
     Dosage: 50MG TWICE PER DAY
     Route: 048
  3. ZOCOR [Concomitant]
     Indication: BLOOD TRIGLYCERIDES INCREASED
     Route: 048

REACTIONS (2)
  - EPILEPSY [None]
  - DRUG INTERACTION [None]
